FAERS Safety Report 9404736 (Version 1)
Quarter: 2013Q3

REPORT INFORMATION
  Report Type: Spontaneous
  Country: US (occurrence: US)
  Receive Date: 20130717
  Receipt Date: 20130717
  Transmission Date: 20140515
  Serious: Yes (Hospitalization, Other)
  Sender: FDA-Public Use
  Company Number: PHEH2013US014850

PATIENT
  Sex: Female

DRUGS (6)
  1. DIOVAN [Suspect]
     Dosage: 320 MG, QD
     Route: 048
  2. PAXIL//PAROXETINE HYDROCHLORIDE [Concomitant]
     Dosage: UNK UKN, UNK
  3. PLAVIX [Concomitant]
     Dosage: UNK UKN, UNK
  4. GLUCOSAMINE [Concomitant]
     Dosage: UNK UKN, UNK
  5. XANAX [Concomitant]
     Dosage: UNK UKN, UNK
  6. CARVEDILOL [Concomitant]
     Dosage: UNK UKN, UNK

REACTIONS (2)
  - Hip fracture [Unknown]
  - Blood disorder [Unknown]
